FAERS Safety Report 5268171-5 (Version None)
Quarter: 2007Q1

REPORT INFORMATION
  Report Type: 
  Country: None (occurrence: None)
  Receive Date: 20070319
  Receipt Date: 20070309
  Transmission Date: 20070707
  Serious: Yes (Death, Hospitalization, Other)
  Sender: FDA-Public Use
  Company Number: PHEH2007US01251

PATIENT
  Age: 81 Year
  Sex: Male
  Weight: 70.748 kg

DRUGS (3)
  1. EXJADE [Suspect]
     Indication: IRON OVERLOAD
     Dosage: 1000 MG, QD
     Route: 048
     Dates: start: 20060608, end: 20061213
  2. DILANTIN [Concomitant]
     Indication: CONVULSION
     Dosage: 400MG QAM, 300MG QHS
     Route: 048
     Dates: start: 20020612
  3. VALIUM [Concomitant]
     Indication: MUSCLE SPASMS
     Dosage: 5 MG, QD
     Route: 048
     Dates: start: 20020612

REACTIONS (21)
  - ARTERIOSCLEROSIS CORONARY ARTERY [None]
  - ASTHENIA [None]
  - BLOOD THYROID STIMULATING HORMONE DECREASED [None]
  - BLOOD UREA INCREASED [None]
  - BONE MARROW FAILURE [None]
  - CARDIOMEGALY [None]
  - EXTRAMEDULLARY HAEMOPOIESIS [None]
  - FALL [None]
  - GENERALISED OEDEMA [None]
  - HAEMATOCRIT DECREASED [None]
  - HAEMOGLOBIN DECREASED [None]
  - HYPOTHYROIDISM [None]
  - MYELOFIBROSIS [None]
  - OSTEOSCLEROSIS [None]
  - OXYGEN SATURATION DECREASED [None]
  - PLATELET COUNT DECREASED [None]
  - PLEURAL EFFUSION [None]
  - PNEUMONIA [None]
  - SERUM FERRITIN INCREASED [None]
  - SPINAL COMPRESSION FRACTURE [None]
  - WHITE BLOOD CELL COUNT INCREASED [None]
